FAERS Safety Report 16421039 (Version 1)
Quarter: 2019Q2

REPORT INFORMATION
  Report Type: Spontaneous
  Country: CA (occurrence: CA)
  Receive Date: 20190612
  Receipt Date: 20190612
  Transmission Date: 20190711
  Serious: Yes (Other)
  Sender: FDA-Public Use
  Company Number: CA-PFIZER INC-2019247460

PATIENT
  Age: 33 Year
  Sex: Female

DRUGS (2)
  1. KETOROLAC TROMETHAMINE. [Suspect]
     Active Substance: KETOROLAC TROMETHAMINE
     Indication: ARTHRALGIA
     Dosage: 10 MG, UNK
     Route: 065
  2. KETOROLAC TROMETHAMINE. [Suspect]
     Active Substance: KETOROLAC TROMETHAMINE
     Dosage: 10 MG, UNK
     Route: 065

REACTIONS (1)
  - Haemorrhage [Unknown]
